FAERS Safety Report 8846496 (Version 1)
Quarter: 2012Q4

REPORT INFORMATION
  Report Type: 
  Country: US (occurrence: US)
  Receive Date: 20121017
  Receipt Date: 20121017
  Transmission Date: 20130627
  Serious: No
  Sender: FDA-Public Use
  Company Number: US-GLAXOSMITHKLINE-A0944501A

PATIENT
  Age: 53 Year
  Sex: Female
  Weight: 53.6 kg

DRUGS (4)
  1. CEFTIN [Suspect]
     Route: 065
  2. ZYRTEC [Concomitant]
  3. RHINOCORT [Concomitant]
  4. ORAL CONTRACEPTIVES [Concomitant]

REACTIONS (1)
  - Hypersensitivity [Unknown]
